FAERS Safety Report 9832905 (Version 3)
Quarter: 2014Q1

REPORT INFORMATION
  Report Type: Spontaneous
  Country: CZ (occurrence: CZ)
  Receive Date: 20140121
  Receipt Date: 20140213
  Transmission Date: 20141002
  Serious: Yes (Life-Threatening, Hospitalization, Disabling)
  Sender: FDA-Public Use
  Company Number: CZ-B.I. PHARMACEUTICALS,INC./RIDGEFIELD-2014-BI-02110CZ

PATIENT
  Age: 74 Year
  Sex: Male

DRUGS (8)
  1. PRADAXA [Suspect]
     Indication: ATRIAL FIBRILLATION
     Dosage: 220 MG
     Route: 048
     Dates: start: 20120619, end: 20131224
  2. ARIXTRA [Concomitant]
     Indication: ANTICOAGULANT THERAPY
  3. VEROSPIRON 25 (SPIRONOLACTON) [Concomitant]
     Indication: PRODUCT USED FOR UNKNOWN INDICATION
     Dosage: 25 MG
     Route: 048
  4. CONTROLOC 40 (PANTOPRAZOLUM) [Concomitant]
     Indication: PRODUCT USED FOR UNKNOWN INDICATION
     Dosage: 40 MG
     Route: 048
  5. AKTIFERIN COMP. FERROSI SULFAS HYDRICUS, SERINUM,ACIDUM FOLICUM, CYANO [Concomitant]
     Indication: ANAEMIA
     Dosage: DOSE PER APPLICATION: 34,5 FE2+ MG
     Route: 048
  6. AUGMENTIN [Concomitant]
     Indication: PNEUMONIA
     Dates: start: 20131224
  7. CIPROFLOXACIN [Concomitant]
     Indication: PNEUMONIA
     Dates: start: 20131224
  8. CLEXANE [Concomitant]
     Indication: PRODUCT USED FOR UNKNOWN INDICATION
     Dosage: 0.4
     Route: 058

REACTIONS (3)
  - Pneumonia [Recovered/Resolved]
  - Anaemia [Unknown]
  - Gastrointestinal haemorrhage [Unknown]
